FAERS Safety Report 6573976-4 (Version None)
Quarter: 2010Q1

REPORT INFORMATION
  Report Type: 
  Country: None (occurrence: None)
  Receive Date: 20100208
  Receipt Date: 20100128
  Transmission Date: 20100710
  Serious: Yes (Other)
  Sender: FDA-Public Use
  Company Number: FR-JNJFOC-20100104917

PATIENT
  Age: 67 Year
  Sex: Female
  Weight: 55 kg

DRUGS (2)
  1. CAELYX [Suspect]
     Indication: OVARIAN CANCER METASTATIC
     Dosage: 3 INFUSIONS
     Route: 042
  2. OMEPRAZOLE [Concomitant]
     Route: 065

REACTIONS (2)
  - ECZEMA [None]
  - PALMAR-PLANTAR ERYTHRODYSAESTHESIA SYNDROME [None]
